FAERS Safety Report 8956803 (Version 1)
Quarter: 2012Q4

REPORT INFORMATION
  Report Type: 
  Country: DK (occurrence: FR)
  Receive Date: 20121210
  Receipt Date: 20121210
  Transmission Date: 20130627
  Serious: Yes (Death)
  Sender: FDA-Public Use
  Company Number: FR-FRI-1000040937

PATIENT
  Age: 55 Year
  Sex: Male

DRUGS (9)
  1. ESCITALOPRAM [Suspect]
     Dosage: 10 mg
     Route: 048
     Dates: end: 20121031
  2. PLAVIX [Suspect]
     Indication: MYOCARDIAL INFARCTION
     Dosage: 75 mg
     Route: 048
     Dates: end: 20121030
  3. DEPAKINE CHRONO [Concomitant]
     Dosage: 2250 mg
     Route: 048
  4. LYRICA [Concomitant]
     Dosage: 200 mg
     Route: 048
  5. URBANYL [Concomitant]
     Dosage: 100 mg
     Route: 048
  6. VIMPAT [Concomitant]
     Dosage: 100 mg
     Route: 048
  7. KREDEX [Concomitant]
     Dosage: 12.5 mg
     Route: 048
  8. TAHOR [Concomitant]
     Dosage: 80 mg
     Route: 048
  9. LERCAN [Concomitant]
     Dosage: 20 mg
     Route: 048

REACTIONS (1)
  - Cerebral haematoma [Fatal]
